FAERS Safety Report 9632595 (Version 6)
Quarter: 2015Q1

REPORT INFORMATION
  Report Type: Spontaneous
  Country: US (occurrence: US)
  Receive Date: 20131018
  Receipt Date: 20150227
  Transmission Date: 20150721
  Serious: Yes (Other)
  Sender: FDA-Public Use
  Company Number: US-009507513-1310USA005572

PATIENT
  Sex: Female
  Weight: 52.15 kg

DRUGS (7)
  1. FOSAMAX [Suspect]
     Active Substance: ALENDRONATE SODIUM
     Indication: OSTEOPOROSIS
     Dosage: 70 MG, QW
     Route: 048
     Dates: start: 20020525, end: 200805
  2. CALCIUM (UNSPECIFIED) (+) VITAMIN D (UNSPECIFIED) [Concomitant]
     Active Substance: CALCIUM CARBONATE\VITAMIN D
     Dosage: 630MG / 500IU, QD
     Dates: start: 1970
  3. VITAMINS (UNSPECIFIED) [Concomitant]
     Active Substance: VITAMINS
     Dosage: UNK, QD
     Dates: start: 1970
  4. ALENDRONATE SODIUM. [Suspect]
     Active Substance: ALENDRONATE SODIUM
     Indication: OSTEOPOROSIS
     Dosage: 70 MG, QW
     Dates: start: 20080505, end: 20100915
  5. OMEGA-3 MARINE TRIGLYCERIDES [Concomitant]
     Active Substance: FISH OIL
     Dosage: 1000MG, QD
     Route: 048
     Dates: start: 1970
  6. FOSAMAX [Suspect]
     Active Substance: ALENDRONATE SODIUM
     Indication: OSTEOPENIA
  7. CHONDROITIN SULFATE (BOVINE)\GLUCOSAMINE SULFATE [Concomitant]
     Active Substance: CHONDROITIN SULFATE (BOVINE)\GLUCOSAMINE SULFATE
     Dosage: 500MG / 400MG, QD
     Dates: start: 1970

REACTIONS (19)
  - Cartilage injury [Not Recovered/Not Resolved]
  - Transfusion [Unknown]
  - Osteonecrosis [Unknown]
  - Breast lump removal [Unknown]
  - Femur fracture [Recovered/Resolved]
  - Vitamin D deficiency [Unknown]
  - Blood cholesterol increased [Not Recovered/Not Resolved]
  - Osteoarthritis [Unknown]
  - Cataract operation [Unknown]
  - Hypoparathyroidism [Unknown]
  - Spinal osteoarthritis [Unknown]
  - Carpal tunnel decompression [Unknown]
  - Cataract operation [Unknown]
  - Skin cancer [Unknown]
  - Breast cancer [Unknown]
  - Osteoarthritis [Unknown]
  - Bursitis [Not Recovered/Not Resolved]
  - Bladder neck suspension [Unknown]
  - Intervertebral disc protrusion [Unknown]

NARRATIVE: CASE EVENT DATE: 2005
